FAERS Safety Report 6042488-9 (Version None)
Quarter: 2009Q1

REPORT INFORMATION
  Report Type: 
  Country: None (occurrence: None)
  Receive Date: 20090116
  Receipt Date: 20090113
  Transmission Date: 20090719
  Serious: Yes (Other)
  Sender: FDA-Public Use
  Company Number: CA-AMGEN-US324346

PATIENT
  Sex: Male
  Weight: 82 kg

DRUGS (2)
  1. VECTIBIX [Suspect]
     Indication: NEOPLASM MALIGNANT
     Route: 042
     Dates: start: 20080701
  2. LEVOTHYROXINE SODIUM [Concomitant]
     Route: 065
     Dates: start: 20071101

REACTIONS (3)
  - BRONCHOSPASM [None]
  - RASH [None]
  - URTICARIA [None]
